FAERS Safety Report 9635716 (Version 2)
Quarter: 2013Q4

REPORT INFORMATION
  Report Type: Spontaneous
  Country: JP (occurrence: JP)
  Receive Date: 20131021
  Receipt Date: 20131029
  Transmission Date: 20140711
  Serious: Yes (Other)
  Sender: FDA-Public Use
  Company Number: JP-GLAXOSMITHKLINE-B0932232A

PATIENT
  Age: 73 Year
  Sex: Male

DRUGS (1)
  1. VALTREX [Suspect]
     Indication: HERPES ZOSTER
     Dosage: 1000MG THREE TIMES PER DAY
     Route: 048
     Dates: start: 20130917, end: 20130922

REACTIONS (6)
  - Renal impairment [Recovered/Resolved]
  - Renal failure acute [Recovered/Resolved]
  - Renal impairment [Unknown]
  - Dysuria [Unknown]
  - Dehydration [Unknown]
  - Decreased appetite [Unknown]
